FAERS Safety Report 14763645 (Version 1)
Quarter: 2018Q2

REPORT INFORMATION
  Report Type: Spontaneous
  Country: FR (occurrence: FR)
  Receive Date: 20180416
  Receipt Date: 20180416
  Transmission Date: 20180711
  Serious: Yes (Hospitalization)
  Sender: FDA-Public Use
  Company Number: FR-TEVA-2018-FR-882558

PATIENT
  Age: 34 Year
  Sex: Female
  Weight: 88 kg

DRUGS (8)
  1. ISOPTINE [Suspect]
     Active Substance: VERAPAMIL HYDROCHLORIDE
     Indication: HYPERTENSION
     Dosage: 2 DOSAGE FORMS DAILY;
     Route: 048
  2. DIFFU K, G?LULE [Concomitant]
     Active Substance: POTASSIUM CHLORIDE
     Dosage: 1200 MILLIGRAM DAILY;
     Route: 048
  3. MIRENA 52 MG (20 MICROGRAMMES/24 HEURES), DISPOSITIF INTRA-UT?RIN [Concomitant]
     Route: 015
  4. RAMIPRIL. [Suspect]
     Active Substance: RAMIPRIL
     Indication: HYPERTENSION
     Dosage: 10 MILLIGRAM DAILY;
     Route: 048
  5. EUPRESSYL 60 MG, G?LULE [Suspect]
     Active Substance: URAPIDIL
     Indication: HYPERTENSION
     Dosage: 3 DOSAGE FORMS DAILY;
     Route: 048
  6. FLUDEX 1,5 MG, COMPRIM? PELLICUL? ? LIB?RATION PROLONG?E [Suspect]
     Active Substance: INDAPAMIDE
     Indication: HYPERTENSION
     Dosage: 1 DOSAGE FORMS DAILY;
     Route: 048
  7. SPIRONOLACTONE. [Suspect]
     Active Substance: SPIRONOLACTONE
     Indication: HYPERTENSION
     Dosage: 50 MILLIGRAM DAILY;
     Route: 048
  8. DOLIPRANE 1000 MG, COMPRIM? [Concomitant]
     Route: 048

REACTIONS (1)
  - Drug ineffective [Not Recovered/Not Resolved]
